FAERS Safety Report 17648200 (Version 2)
Quarter: 2020Q2

REPORT INFORMATION
  Report Type: Report from Study
  Country: CA (occurrence: CA)
  Receive Date: 20200408
  Receipt Date: 20200420
  Transmission Date: 20200713
  Serious: Yes (Death, Hospitalization)
  Sender: FDA-Public Use
  Company Number: CA-EISAI MEDICAL RESEARCH-EC-2020-072946

PATIENT
  Age: 59 Year
  Sex: Male

DRUGS (1)
  1. LENVIMA [Suspect]
     Active Substance: LENVATINIB
     Indication: HEPATOCELLULAR CARCINOMA
     Route: 048
     Dates: start: 20200206

REACTIONS (3)
  - Haematemesis [Unknown]
  - Death [Fatal]
  - Amnesia [Unknown]

NARRATIVE: CASE EVENT DATE: 20200405
